FAERS Safety Report 25929742 (Version 1)
Quarter: 2025Q4

REPORT INFORMATION
  Report Type: Spontaneous
  Country: EU (occurrence: EU)
  Receive Date: 20251016
  Receipt Date: 20251016
  Transmission Date: 20260118
  Serious: Yes (Other)
  Sender: ACCORD
  Company Number: None

PATIENT
  Age: 79 Year
  Sex: Female

DRUGS (1)
  1. METHOTREXATE [Suspect]
     Active Substance: METHOTREXATE
     Indication: Rheumatoid arthritis

REACTIONS (7)
  - Weight decreased [Unknown]
  - Blood creatinine increased [Unknown]
  - Dehydration [Unknown]
  - Diarrhoea haemorrhagic [Unknown]
  - Pericardial effusion [Unknown]
  - Abdominal pain [Unknown]
  - Nausea [Unknown]
